FAERS Safety Report 14563230 (Version 1)
Quarter: 2018Q1

REPORT INFORMATION
  Report Type: Spontaneous
  Country: US (occurrence: US)
  Receive Date: 20180222
  Receipt Date: 20180222
  Transmission Date: 20180509
  Serious: No
  Sender: FDA-Public Use
  Company Number: US-TARO-2017TAR00662

PATIENT
  Sex: Male

DRUGS (1)
  1. BETAMETHASONE CREAM USP 0.1 % [Suspect]
     Active Substance: BETAMETHASONE VALERATE
     Indication: PSORIASIS

REACTIONS (1)
  - Drug ineffective [Unknown]
